FAERS Safety Report 15229138 (Version 2)
Quarter: 2018Q3

REPORT INFORMATION
  Report Type: Spontaneous
  Country: JP (occurrence: JP)
  Receive Date: 20180801
  Receipt Date: 20180814
  Transmission Date: 20181010
  Serious: Yes (Death)
  Sender: FDA-Public Use
  Company Number: JP-ALLERGAN-1837725US

PATIENT
  Age: 50 Year
  Sex: Female

DRUGS (5)
  1. ASENAPINE MALEATE ? BP [Suspect]
     Active Substance: ASENAPINE MALEATE
     Indication: SCHIZOPHRENIA
     Dosage: 5 MG, QD
     Route: 060
     Dates: start: 20180712, end: 20180721
  2. LITHIUM CARBONATE. [Concomitant]
     Active Substance: LITHIUM CARBONATE
     Dosage: UNK, UNKNOWN
     Route: 065
     Dates: start: 20180415, end: 20180721
  3. ESZOPICLONE. [Concomitant]
     Active Substance: ESZOPICLONE
     Dosage: UNK, UNKNOWN
     Route: 065
     Dates: start: 20180415, end: 20180721
  4. AMLODIPINE BESYLATE. [Concomitant]
     Active Substance: AMLODIPINE BESYLATE
     Dosage: UNK, UNKNOWN
     Route: 065
     Dates: start: 20180415, end: 20180721
  5. ZOTEPINE [Concomitant]
     Active Substance: ZOTEPINE
     Dosage: UNK, UNKNOWN
     Route: 065
     Dates: start: 20180415, end: 20180721

REACTIONS (1)
  - Completed suicide [Fatal]

NARRATIVE: CASE EVENT DATE: 20180721
